FAERS Safety Report 8971168 (Version 1)
Quarter: 2012Q4

REPORT INFORMATION
  Report Type: 
  Country: JP (occurrence: JP)
  Receive Date: 20121218
  Receipt Date: 20121218
  Transmission Date: 20130627
  Serious: Yes (Other)
  Sender: FDA-Public Use
  Company Number: JP-ASTELLAS-2012JP011093

PATIENT
  Age: 54 Year
  Sex: Male

DRUGS (12)
  1. PROGRAF [Suspect]
     Indication: BONE MARROW TRANSPLANT
     Dosage: 1.5 mg, bid
     Route: 048
     Dates: start: 20120926, end: 20121113
  2. PROGRAF [Suspect]
     Indication: GRAFT VERSUS HOST DISEASE
     Dosage: 4 mg, Unknown/D
     Route: 048
     Dates: start: 20121114, end: 20121119
  3. PROGRAF [Suspect]
     Dosage: 1.5 mg, bid
     Route: 048
     Dates: start: 20121120
  4. PARIET [Concomitant]
     Dosage: UNK
     Route: 048
  5. CRESTOR [Concomitant]
     Dosage: UNK
     Route: 048
  6. ZYLORIC [Concomitant]
     Dosage: UNK
     Route: 048
  7. BAKTAR [Concomitant]
     Dosage: UNK
     Route: 048
  8. METHYCOBAL [Concomitant]
     Dosage: UNK
     Route: 048
  9. URSO                               /00465701/ [Concomitant]
     Dosage: UNK
     Route: 048
  10. CELLCEPT                           /01275102/ [Concomitant]
     Dosage: UNK
     Route: 048
  11. GASLON [Concomitant]
     Dosage: UNK
     Route: 048
  12. MIYA-BM [Concomitant]
     Dosage: UNK
     Route: 048

REACTIONS (3)
  - Drug ineffective [Unknown]
  - Graft versus host disease [Unknown]
  - Tremor [Not Recovered/Not Resolved]
